FAERS Safety Report 9122691 (Version 2)
Quarter: 2013Q1

REPORT INFORMATION
  Report Type: Report from Study
  Country: BE (occurrence: BE)
  Receive Date: 20130115
  Receipt Date: 20130312
  Transmission Date: 20140127
  Serious: Yes (Death)
  Sender: FDA-Public Use
  Company Number: BE-SANOFI-AVENTIS-2013SA002654

PATIENT
  Age: 57 Year
  Sex: Male

DRUGS (4)
  1. CABAZITAXEL [Suspect]
     Indication: SQUAMOUS CELL CARCINOMA OF HEAD AND NECK
     Route: 042
     Dates: start: 20120926, end: 20120926
  2. CABAZITAXEL [Suspect]
     Indication: SQUAMOUS CELL CARCINOMA OF HEAD AND NECK
     Route: 042
     Dates: start: 20121025, end: 20121025
  3. NOVOMIX [Concomitant]
     Indication: HYPERGLYCAEMIA
  4. DEXAMETHASONE [Concomitant]
     Indication: NEOPLASM MALIGNANT

REACTIONS (1)
  - Death [Fatal]
